FAERS Safety Report 5675668-2 (Version None)
Quarter: 2008Q1

REPORT INFORMATION
  Report Type: 
  Country: None (occurrence: None)
  Receive Date: 20080321
  Receipt Date: 20080311
  Transmission Date: 20080703
  Serious: Yes (Hospitalization)
  Sender: FDA-Public Use
  Company Number: US-AMGEN-US266066

PATIENT
  Sex: Female

DRUGS (11)
  1. PANITUMUMAB [Suspect]
     Indication: COLORECTAL CANCER
     Route: 042
     Dates: start: 20070814
  2. IRINOTECAN HCL [Suspect]
  3. PROTONIX [Concomitant]
     Route: 065
  4. MORPHINE [Concomitant]
     Route: 065
  5. COMPAZINE [Concomitant]
     Route: 065
  6. VITAMIN CAP [Concomitant]
     Route: 065
  7. VITAMIN E [Concomitant]
     Route: 065
  8. FOLIC ACID [Concomitant]
     Route: 065
  9. OMEGA 3 [Concomitant]
     Route: 065
  10. IRON [Concomitant]
     Route: 065
  11. IMODIUM [Concomitant]
     Route: 065

REACTIONS (3)
  - DEHYDRATION [None]
  - GASTROENTERITIS [None]
  - NEUTROPENIA [None]
